FAERS Safety Report 11112732 (Version 1)
Quarter: 2015Q2

REPORT INFORMATION
  Report Type: Spontaneous
  Country: IT (occurrence: IT)
  Receive Date: 20150514
  Receipt Date: 20150514
  Transmission Date: 20150821
  Serious: Yes (Hospitalization)
  Sender: FDA-Public Use
  Company Number: IT-BAYER-2015-219818

PATIENT
  Age: 87 Year
  Sex: Male

DRUGS (10)
  1. SELEPARINA [Suspect]
     Active Substance: NADROPARIN CALCIUM
     Indication: ATRIAL FIBRILLATION
     Dosage: 1 DF, QD
     Route: 058
     Dates: start: 20131101, end: 20150114
  2. TORA-DOL [Suspect]
     Active Substance: KETOROLAC TROMETHAMINE
     Indication: ARTHRALGIA
     Dosage: 10 MG/ML, QD
     Route: 030
     Dates: start: 20150107, end: 20150117
  3. LASIX [Concomitant]
     Active Substance: FUROSEMIDE
     Dosage: 1 DF, UNK
     Route: 048
  4. AVODART [Concomitant]
     Active Substance: DUTASTERIDE
     Dosage: 1 DF, UNK
     Route: 048
  5. APIXABAN [Suspect]
     Active Substance: APIXABAN
     Indication: ATRIAL FIBRILLATION
     Dosage: 2.5 MG, QD
     Route: 048
     Dates: start: 20150114, end: 20150118
  6. ZYLORIC [Concomitant]
     Active Substance: ALLOPURINOL
     Dosage: 150 MG, UNK
     Route: 048
  7. CARDICOR [Concomitant]
     Active Substance: BISOPROLOL
     Dosage: 2 DF, UNK
     Route: 048
  8. CATAPRES-TTS [Concomitant]
     Active Substance: CLONIDINE
     Dosage: 1 DF, UNK
     Route: 003
  9. CARDIOASPIRIN [Suspect]
     Active Substance: ASPIRIN
     Indication: PROPHYLAXIS
     Dosage: 1 DF, QD
     Route: 048
     Dates: start: 20100101, end: 20150118
  10. VALSARTAN. [Concomitant]
     Active Substance: VALSARTAN
     Dosage: 160 MG, UNK
     Route: 048

REACTIONS (2)
  - Gastric ulcer [Recovered/Resolved]
  - Iron deficiency anaemia [Recovered/Resolved]

NARRATIVE: CASE EVENT DATE: 20150115
